FAERS Safety Report 4834133-2 (Version None)
Quarter: 2005Q4

REPORT INFORMATION
  Report Type: 
  Country: None (occurrence: None)
  Receive Date: 20051122
  Receipt Date: 20051114
  Transmission Date: 20060501
  Serious: Yes (Hospitalization)
  Sender: FDA-Public Use
  Company Number: GB-GILEAD-2005-0008931

PATIENT
  Age: 40 Year
  Sex: Male

DRUGS (6)
  1. TRUVADA [Suspect]
     Route: 048
     Dates: start: 20050829
  2. KALETRA [Suspect]
     Route: 048
     Dates: start: 20050829
  3. LISINOPRIL [Concomitant]
     Dates: start: 20050722
  4. TRAZODONE [Concomitant]
     Dates: start: 20040909
  5. OLANZAPINE [Concomitant]
     Dates: start: 20040909
  6. FLUOXETINE [Concomitant]
     Dates: start: 20040909

REACTIONS (3)
  - GASTRITIS [None]
  - PANCREATITIS ACUTE [None]
  - URINARY TRACT INFECTION [None]
